FAERS Safety Report 26025623 (Version 1)
Quarter: 2025Q4

REPORT INFORMATION
  Report Type: Spontaneous
  Country: EU (occurrence: EU)
  Receive Date: 20251111
  Receipt Date: 20251111
  Transmission Date: 20260117
  Serious: Yes (Death, Other)
  Sender: RANBAXY
  Company Number: EU-SUN PHARMACEUTICAL INDUSTRIES LTD-2020R1-248438

PATIENT

DRUGS (2)
  1. HYDROXYCHLOROQUINE [Suspect]
     Active Substance: HYDROXYCHLOROQUINE
     Indication: COVID-19
     Dosage: UNK
     Route: 065
  2. AZITHROMYCIN [Suspect]
     Active Substance: AZITHROMYCIN
     Indication: COVID-19
     Route: 065

REACTIONS (6)
  - Cardiac disorder [Fatal]
  - Off label use [Unknown]
  - Electrocardiogram QT prolonged [Unknown]
  - Ventricular arrhythmia [Unknown]
  - Discomfort [Unknown]
  - Loss of consciousness [Unknown]
